FAERS Safety Report 22325598 (Version 1)
Quarter: 2023Q2

REPORT INFORMATION
  Report Type: Spontaneous
  Country: JP (occurrence: JP)
  Receive Date: 20230516
  Receipt Date: 20230516
  Transmission Date: 20230721
  Serious: Yes (Hospitalization)
  Sender: FDA-Public Use
  Company Number: JP-APIL-2314541US

PATIENT
  Sex: Male

DRUGS (3)
  1. ASENAPINE MALEATE [Suspect]
     Active Substance: ASENAPINE MALEATE
     Indication: Schizophrenia
     Dosage: UNK
     Route: 060
  2. CLONAZEPAM [Concomitant]
     Active Substance: CLONAZEPAM
     Dosage: UNK
  3. LEVOMEPROMAZINE MALEATE [Concomitant]
     Active Substance: LEVOMEPROMAZINE MALEATE
     Dosage: UNK

REACTIONS (6)
  - Schizophrenia [Unknown]
  - Hospitalisation [Unknown]
  - Decreased activity [Unknown]
  - Abulia [Unknown]
  - Cognitive disorder [Unknown]
  - Abulia [Unknown]

NARRATIVE: CASE EVENT DATE: 20210101
